FAERS Safety Report 17594432 (Version 1)
Quarter: 2020Q1

REPORT INFORMATION
  Report Type: Report from Study
  Country: US (occurrence: US)
  Receive Date: 20200327
  Receipt Date: 20200327
  Transmission Date: 20200409
  Serious: Yes (Hospitalization)
  Sender: FDA-Public Use
  Company Number: US-BAUSCH-BL-2020-009258

PATIENT
  Age: 77 Year
  Sex: Female

DRUGS (5)
  1. BABY ASPIRIN [Concomitant]
     Active Substance: ASPIRIN
     Indication: PRODUCT USED FOR UNKNOWN INDICATION
  2. APRESOLINE HYDROCHLORIDE [Concomitant]
     Active Substance: HYDRALAZINE HYDROCHLORIDE
     Indication: PRODUCT USED FOR UNKNOWN INDICATION
  3. AMLODIPINE [Concomitant]
     Active Substance: AMLODIPINE BESYLATE
     Indication: HYPERTENSION
  4. MESTINON [Suspect]
     Active Substance: PYRIDOSTIGMINE BROMIDE
     Dosage: QID (4 TIMES A DAY)
     Route: 048
     Dates: end: 2020
  5. MESTINON [Suspect]
     Active Substance: PYRIDOSTIGMINE BROMIDE
     Indication: MYASTHENIA GRAVIS
     Dosage: QID (4 TIMES A DAY)
     Route: 048
     Dates: start: 1992, end: 2018

REACTIONS (4)
  - Myasthenia gravis [Unknown]
  - Insurance issue [Unknown]
  - Therapy cessation [Unknown]
  - Pneumonia [Unknown]

NARRATIVE: CASE EVENT DATE: 2018
